FAERS Safety Report 5997627-2 (Version None)
Quarter: 2008Q4

REPORT INFORMATION
  Report Type: 
  Country: None (occurrence: None)
  Receive Date: 20081212
  Receipt Date: 20081117
  Transmission Date: 20090506
  Serious: No
  Sender: FDA-Public Use
  Company Number: US-ABBOTT-08P-163-0488565-00

PATIENT
  Sex: Female
  Weight: 56.75 kg

DRUGS (6)
  1. HUMIRA [Suspect]
     Indication: RHEUMATOID ARTHRITIS
     Route: 058
     Dates: start: 20081103, end: 20081103
  2. HUMIRA [Suspect]
     Route: 058
  3. LEVOTHYROXINE SODIUM [Concomitant]
     Indication: THYROIDECTOMY
  4. PREDNISONE TAB [Concomitant]
     Indication: RHEUMATOID ARTHRITIS
  5. HYDROCHLOROTHIAZIDE [Concomitant]
     Indication: FLUID RETENTION
  6. VITAMINS [Concomitant]
     Indication: DRUG USE FOR UNKNOWN INDICATION

REACTIONS (3)
  - DRUG DELIVERY SYSTEM MALFUNCTION [None]
  - DYSPEPSIA [None]
  - WRONG TECHNIQUE IN DRUG USAGE PROCESS [None]
